FAERS Safety Report 17959899 (Version 1)
Quarter: 2020Q2

REPORT INFORMATION
  Report Type: Spontaneous
  Country: US (occurrence: US)
  Receive Date: 20200630
  Receipt Date: 20200630
  Transmission Date: 20200714
  Serious: Yes (Hospitalization, Other)
  Sender: FDA-Public Use
  Company Number: US-ALKEM LABORATORIES LIMITED-US-ALKEM-2020-03125

PATIENT
  Age: 11 Month
  Sex: Female

DRUGS (3)
  1. FLUCONAZOLE. [Suspect]
     Active Substance: FLUCONAZOLE
     Indication: DERMATITIS DIAPER
     Dosage: UNK
     Route: 048
  2. LIDOCAINE. [Suspect]
     Active Substance: LIDOCAINE
     Indication: DERMATITIS DIAPER
     Dosage: UNK
     Route: 061
  3. NYSTATIN. [Suspect]
     Active Substance: NYSTATIN
     Indication: DERMATITIS DIAPER
     Dosage: UNK
     Route: 061

REACTIONS (4)
  - Generalised tonic-clonic seizure [Recovered/Resolved]
  - Status epilepticus [Recovered/Resolved]
  - Toxicity to various agents [Unknown]
  - Drug ineffective [Unknown]
